FAERS Safety Report 16717261 (Version 1)
Quarter: 2019Q3

REPORT INFORMATION
  Report Type: Spontaneous
  Country: FR (occurrence: FR)
  Receive Date: 20190819
  Receipt Date: 20190819
  Transmission Date: 20191005
  Serious: Yes (Other)
  Sender: FDA-Public Use
  Company Number: FR-MYLANLABS-2019M1076967

PATIENT
  Age: 76 Year
  Sex: Female
  Weight: 59 kg

DRUGS (5)
  1. PREDNISONE. [Suspect]
     Active Substance: PREDNISONE
     Indication: PLASMA CELL MYELOMA
     Dosage: 100 MILLIGRAM, CYCLE (4 JOURS CONSECUTFS CYCLE TOUTES LES 4 A 6 SEMAINES)
     Route: 048
     Dates: start: 20180122, end: 20180721
  2. VELCADE [Suspect]
     Active Substance: BORTEZOMIB
     Indication: PLASMA CELL MYELOMA
     Dosage: 1.3 MILLIGRAM/SQ. METER, CYCLE (J1 J8 J15 J22)
     Route: 042
     Dates: start: 20180122, end: 20180721
  3. DETENSIEL                          /00802602/ [Concomitant]
     Active Substance: BISOPROLOL FUMARATE
     Dosage: UNK
  4. VALACICLOVIR [Concomitant]
     Active Substance: VALACYCLOVIR HYDROCHLORIDE
     Dosage: UNK
  5. ALKERAN [Suspect]
     Active Substance: MELPHALAN
     Indication: PLASMA CELL MYELOMA
     Dosage: 0.1 MILLIGRAM/KILOGRAM, CYCLE (4 JOURS CONSECUTIFS TOUTE LES 4 A 6 SEMAINES)
     Route: 048
     Dates: start: 20180122, end: 20180721

REACTIONS (5)
  - Sleep disorder [Recovered/Resolved]
  - Nail disorder [Recovered/Resolved]
  - Neuropathy peripheral [Recovered/Resolved]
  - Alopecia [Recovered/Resolved]
  - Nausea [Recovered/Resolved]

NARRATIVE: CASE EVENT DATE: 201807
